FAERS Safety Report 8001574-4 (Version None)
Quarter: 2011Q4

REPORT INFORMATION
  Report Type: 
  Country: None (occurrence: None)
  Receive Date: 20111123
  Receipt Date: 20110909
  Transmission Date: 20120403
  Serious: No
  Sender: FDA-Public Use
  Company Number: 336498

PATIENT
  Age: 60 Year
  Sex: Female
  Weight: 76.2 kg

DRUGS (1)
  1. VICTOZA [Suspect]
     Indication: TYPE 2 DIABETES MELLITUS
     Dosage: , SUBCUTANEOUS
     Route: 058

REACTIONS (6)
  - NAUSEA [None]
  - VOMITING [None]
  - WEIGHT DECREASED [None]
  - BLOOD PRESSURE INCREASED [None]
  - HAEMATEMESIS [None]
  - ASTHENIA [None]
